FAERS Safety Report 11215159 (Version 2)
Quarter: 2015Q3

REPORT INFORMATION
  Report Type: Spontaneous
  Country: US (occurrence: CA)
  Receive Date: 20150624
  Receipt Date: 20150716
  Transmission Date: 20151125
  Serious: Yes (Other)
  Sender: FDA-Public Use
  Company Number: US-MYLANLABS-2015M1020516

PATIENT

DRUGS (3)
  1. METHOTREXATE [Suspect]
     Active Substance: METHOTREXATE
     Indication: RHEUMATOID ARTHRITIS
     Dosage: UNK UNK, QW (INJECTION FOR THE PAST 5 YEARS)
     Dates: start: 2010
  2. IRON [Concomitant]
     Active Substance: IRON
     Dosage: UNK
     Dates: start: 201505, end: 201505
  3. XELJANZ [Suspect]
     Active Substance: TOFACITINIB CITRATE
     Indication: RHEUMATOID ARTHRITIS
     Dosage: 5 MG, BID
     Route: 048
     Dates: start: 20150617

REACTIONS (7)
  - Pneumonia [Unknown]
  - Condition aggravated [Not Recovered/Not Resolved]
  - Rheumatoid arthritis [Not Recovered/Not Resolved]
  - Gallbladder disorder [Unknown]
  - Night sweats [Not Recovered/Not Resolved]
  - Periarthritis [Not Recovered/Not Resolved]
  - Arthralgia [Not Recovered/Not Resolved]
